FAERS Safety Report 5321795-9 (Version None)
Quarter: 2007Q2

REPORT INFORMATION
  Report Type: 
  Country: None (occurrence: None)
  Receive Date: 20070510
  Receipt Date: 20070430
  Transmission Date: 20071010
  Serious: Yes (Other)
  Sender: FDA-Public Use
  Company Number: US-PFIZER INC-2007035236

PATIENT
  Sex: Male

DRUGS (5)
  1. DILANTIN [Suspect]
     Indication: CONVULSION
     Dates: start: 20061101, end: 20070201
  2. PHENYTOIN SODIUM [Suspect]
     Indication: CONVULSION
  3. SYNTHROID [Concomitant]
  4. TRIAMTERENE [Concomitant]
  5. TOPROL-XL [Concomitant]

REACTIONS (3)
  - ORAL MUCOSAL DISORDER [None]
  - SWELLING [None]
  - UNEVALUABLE EVENT [None]
